FAERS Safety Report 4284402-2 (Version None)
Quarter: 2004Q1

REPORT INFORMATION
  Report Type: 
  Country: None (occurrence: None)
  Receive Date: 20040203
  Receipt Date: 20040122
  Transmission Date: 20041129
  Serious: Yes (Other)
  Sender: FDA-Public Use
  Company Number: US-BRISTOL-MYERS SQUIBB COMPANY-12484739

PATIENT
  Age: 36 Year
  Sex: Female
  Weight: 113 kg

DRUGS (2)
  1. ABILIFY [Suspect]
     Indication: THINKING ABNORMAL
     Route: 048
     Dates: start: 20030601
  2. PAXIL CR [Concomitant]

REACTIONS (2)
  - ANTEPARTUM HAEMORRHAGE [None]
  - PREGNANCY [None]
